FAERS Safety Report 16154515 (Version 1)
Quarter: 2019Q2

REPORT INFORMATION
  Report Type: Report from Study
  Country: TR (occurrence: TR)
  Receive Date: 20190403
  Receipt Date: 20190403
  Transmission Date: 20190711
  Serious: Yes (Other)
  Sender: FDA-Public Use
  Company Number: TR-ROCHE-2288872

PATIENT

DRUGS (5)
  1. 5-FU [Suspect]
     Active Substance: FLUOROURACIL
     Indication: COLORECTAL CANCER METASTATIC
     Route: 065
  2. FOLINIC ACID [Suspect]
     Active Substance: LEUCOVORIN
     Indication: COLORECTAL CANCER METASTATIC
     Route: 065
  3. BEVACIZUMAB. [Suspect]
     Active Substance: BEVACIZUMAB
     Indication: COLORECTAL CANCER METASTATIC
     Route: 065
  4. OXALIPLATIN. [Suspect]
     Active Substance: OXALIPLATIN
     Indication: COLORECTAL CANCER METASTATIC
     Route: 065
  5. IRINOTECAN [Suspect]
     Active Substance: IRINOTECAN
     Indication: COLORECTAL CANCER METASTATIC
     Route: 065

REACTIONS (23)
  - Arrhythmia [Unknown]
  - Nausea [Unknown]
  - Diarrhoea [Unknown]
  - Intestinal perforation [Unknown]
  - Rash [Unknown]
  - Palmar-plantar erythrodysaesthesia syndrome [Unknown]
  - Febrile neutropenia [Unknown]
  - Subileus [Unknown]
  - Vomiting [Unknown]
  - Anaemia [Unknown]
  - Nail disorder [Unknown]
  - Pulmonary embolism [Unknown]
  - Proteinuria [Unknown]
  - Neutropenia [Unknown]
  - Epistaxis [Unknown]
  - Ileus [Unknown]
  - Deep vein thrombosis [Unknown]
  - Mucosal inflammation [Unknown]
  - Malignant hypertension [Unknown]
  - Neuropathy peripheral [Unknown]
  - Thrombocytopenia [Unknown]
  - Dehydration [Unknown]
  - Constipation [Unknown]
